FAERS Safety Report 24927905 (Version 2)
Quarter: 2025Q3

REPORT INFORMATION
  Report Type: Report from Study
  Country: US (occurrence: US)
  Receive Date: 20250205
  Receipt Date: 20250803
  Transmission Date: 20251020
  Serious: Yes (Hospitalization, Other)
  Sender: ALEXION PHARMACEUTICALS
  Company Number: US-AstraZeneca-CH-00796473A

PATIENT
  Age: 65 Year
  Sex: Female
  Weight: 87.543 kg

DRUGS (1)
  1. CAPIVASERTIB [Suspect]
     Active Substance: CAPIVASERTIB
     Indication: Breast cancer
     Dosage: 320 MILLIGRAM, BID
     Dates: start: 20240805

REACTIONS (3)
  - Haemorrhagic stroke [Recovering/Resolving]
  - Myocardial infarction [Recovering/Resolving]
  - Product dose omission issue [Recovered/Resolved]

NARRATIVE: CASE EVENT DATE: 20241213
